FAERS Safety Report 9351604 (Version 1)
Quarter: 2013Q2

REPORT INFORMATION
  Report Type: Spontaneous
  Country: FR (occurrence: FR)
  Receive Date: 20130617
  Receipt Date: 20130617
  Transmission Date: 20140414
  Serious: Yes (Hospitalization)
  Sender: FDA-Public Use
  Company Number: FR-B.I. PHARMACEUTICALS,INC./RIDGEFIELD-2013-FF-01652FF

PATIENT
  Age: 78 Year
  Sex: Male

DRUGS (3)
  1. PRADAXA [Suspect]
     Indication: ARRHYTHMIA
     Dosage: 220 MG
     Route: 048
     Dates: start: 20130402
  2. KARDEGIC [Suspect]
     Dosage: 75 MG
     Route: 048
  3. TAHOR [Suspect]
     Dosage: 10 MG
     Route: 048

REACTIONS (4)
  - Haematemesis [Recovered/Resolved with Sequelae]
  - Oesophageal ulcer [Recovered/Resolved with Sequelae]
  - Mallory-Weiss syndrome [Recovered/Resolved with Sequelae]
  - Anaemia [Recovered/Resolved with Sequelae]
